FAERS Safety Report 5236841-0 (Version None)
Quarter: 2007Q1

REPORT INFORMATION
  Report Type: 
  Country: None (occurrence: None)
  Receive Date: 20061208
  Receipt Date: 20050713
  Transmission Date: 20070707
  Serious: Yes (Other)
  Sender: FDA-Public Use
  Company Number: 2005UW10413

PATIENT
  Age: 74 Year
  Sex: Female
  Weight: 57.606 kg

DRUGS (6)
  1. CRESTOR [Suspect]
     Indication: HYPERTENSION
     Dosage: 5 MG  QD  PO
     Route: 048
     Dates: start: 20050701
  2. DIOVAN [Concomitant]
  3. PEPCID AC [Concomitant]
  4. ZOLOFT [Concomitant]
  5. COLACE [Concomitant]
  6. PROTONIX [Concomitant]

REACTIONS (3)
  - ABDOMINAL PAIN UPPER [None]
  - DISORIENTATION [None]
  - DIZZINESS [None]
